FAERS Safety Report 11783421 (Version 1)
Quarter: 2015Q4

REPORT INFORMATION
  Report Type: Spontaneous
  Country: US (occurrence: US)
  Receive Date: 20151127
  Receipt Date: 20151127
  Transmission Date: 20160305
  Serious: No
  Sender: FDA-Public Use
  Company Number: US-BAYER-2015-476838

PATIENT
  Age: 90 Year
  Sex: Female
  Weight: 58.5 kg

DRUGS (8)
  1. MIRALAX [Suspect]
     Active Substance: POLYETHYLENE GLYCOL 3350
     Indication: CONSTIPATION
     Dosage: UNK, QD
     Route: 048
     Dates: start: 2014
  2. FLAXSEED [Concomitant]
     Active Substance: FLAX SEED
  3. LASIX [Concomitant]
     Active Substance: FUROSEMIDE
  4. CODEINE [Concomitant]
     Active Substance: CODEINE
  5. POTASSIUM [Concomitant]
     Active Substance: POTASSIUM
  6. METOPROLOL TARTRATE. [Concomitant]
     Active Substance: METOPROLOL TARTRATE
  7. PROSTATIN [Concomitant]
     Active Substance: ARCTOSTAPHYLOS UVA-URSI LEAF\URTICA DIOICA
  8. VITAMIN D [Concomitant]
     Active Substance: CHOLECALCIFEROL

REACTIONS (1)
  - Product use issue [None]

NARRATIVE: CASE EVENT DATE: 2014
